FAERS Safety Report 23571316 (Version 3)
Quarter: 2024Q2

REPORT INFORMATION
  Report Type: Report from Study
  Country: JP (occurrence: JP)
  Receive Date: 20240227
  Receipt Date: 20240619
  Transmission Date: 20240716
  Serious: Yes (Other)
  Sender: FDA-Public Use
  Company Number: JP-AstraZeneca-CH-00570696A

PATIENT
  Age: 74 Year
  Sex: Female
  Weight: 41.8 kg

DRUGS (9)
  1. ULTOMIRIS [Suspect]
     Active Substance: RAVULIZUMAB-CWVZ
     Indication: Myasthenia gravis
     Dosage: 2400 MILLIGRAM
     Route: 041
     Dates: start: 20230130
  2. ULTOMIRIS [Suspect]
     Active Substance: RAVULIZUMAB-CWVZ
     Dosage: 3000 MILLIGRAM
     Route: 041
     Dates: start: 20230213
  3. SPIRONOLACTONE [Suspect]
     Active Substance: SPIRONOLACTONE
     Indication: Product used for unknown indication
     Dosage: UNK
     Route: 065
  4. PREDONINE [Concomitant]
     Active Substance: PREDNISOLONE
     Indication: Myasthenia gravis
     Dosage: 15 MILLIGRAM
     Route: 048
     Dates: start: 20221110, end: 20230731
  5. PREDONINE [Concomitant]
     Active Substance: PREDNISOLONE
     Dosage: 14 MILLIGRAM
     Route: 048
     Dates: start: 20230801, end: 20230925
  6. PREDONINE [Concomitant]
     Active Substance: PREDNISOLONE
     Dosage: 13 MILLIGRAM
     Route: 048
     Dates: start: 20230926, end: 20231120
  7. PROGRAF [Concomitant]
     Active Substance: TACROLIMUS
     Indication: Myasthenia gravis
     Dosage: 1 MILLIGRAM
     Route: 048
     Dates: start: 20221025, end: 20230522
  8. PROGRAF [Concomitant]
     Active Substance: TACROLIMUS
     Dosage: 2 MILLIGRAM
     Route: 048
     Dates: start: 20230523, end: 20230605
  9. PROGRAF [Concomitant]
     Active Substance: TACROLIMUS
     Dosage: 3 MILLIGRAM
     Route: 048
     Dates: start: 20230606

REACTIONS (2)
  - Cardiac amyloidosis [Unknown]
  - Hepatic function abnormal [Recovered/Resolved]
